FAERS Safety Report 8854915 (Version 1)
Quarter: 2012Q4

REPORT INFORMATION
  Report Type: 
  Country: JP (occurrence: JP)
  Receive Date: 20121023
  Receipt Date: 20121023
  Transmission Date: 20130627
  Serious: Yes (Other)
  Sender: FDA-Public Use
  Company Number: JP-SANOFI-AVENTIS-2012SA076825

PATIENT
  Age: 70 Year
  Sex: Male

DRUGS (2)
  1. PLAVIX [Suspect]
     Indication: MYOCARDIAL INFARCTION
     Route: 048
  2. ITAVASTATIN [Concomitant]
     Route: 048

REACTIONS (1)
  - Rhabdomyolysis [Unknown]
